FAERS Safety Report 25587799 (Version 2)
Quarter: 2025Q3

REPORT INFORMATION
  Report Type: Spontaneous
  Country: JP (occurrence: JP)
  Receive Date: 20250721
  Receipt Date: 20250801
  Transmission Date: 20251021
  Serious: Yes (Congenital Anomaly)
  Sender: BIOMARIN
  Company Number: JP-BIOMARINAP-JP-2025-167446

PATIENT
  Age: 10 Year
  Sex: Female

DRUGS (1)
  1. VOXZOGO [Suspect]
     Active Substance: VOSORITIDE
     Indication: Osteochondrodysplasia
     Dosage: UNK, QD
     Dates: start: 20230322

REACTIONS (1)
  - Foramen magnum stenosis [Unknown]

NARRATIVE: CASE EVENT DATE: 20250401
